FAERS Safety Report 9797561 (Version 3)
Quarter: 2014Q2

REPORT INFORMATION
  Report Type: Spontaneous
  Country: CN (occurrence: CN)
  Receive Date: 20140106
  Receipt Date: 20140527
  Transmission Date: 20141212
  Serious: Yes (Other)
  Sender: FDA-Public Use
  Company Number: CN-ASTRAZENECA-2014SE00278

PATIENT
  Age: 20614 Day
  Sex: Male
  Weight: 81 kg

DRUGS (8)
  1. ATROVASTATIN CALCIUM [Suspect]
     Indication: ACUTE MYOCARDIAL INFARCTION
     Route: 048
     Dates: start: 20131027
  2. TICAGRELOR [Suspect]
     Indication: ACUTE CORONARY SYNDROME
     Route: 048
     Dates: start: 20131209
  3. CLOPIDOGREL [Suspect]
     Indication: ACUTE CORONARY SYNDROME
     Route: 048
     Dates: start: 20131027, end: 20131209
  4. ASP [Suspect]
     Indication: ACUTE MYOCARDIAL INFARCTION
     Route: 048
     Dates: start: 20131027
  5. ISOSORBIDE MONONITRATE [Concomitant]
     Indication: ACUTE MYOCARDIAL INFARCTION
     Route: 048
     Dates: start: 20131027
  6. METOPROLOL SUCCINATE [Concomitant]
     Indication: ACUTE MYOCARDIAL INFARCTION
     Route: 048
     Dates: start: 20131217
  7. SUSTAINED RELEASE [Concomitant]
  8. CANDESARTAN CILEXETIL [Concomitant]
     Indication: ACUTE MYOCARDIAL INFARCTION
     Route: 048
     Dates: start: 20131021

REACTIONS (3)
  - Drug-induced liver injury [Not Recovered/Not Resolved]
  - Blood bilirubin increased [None]
  - Hepatic steatosis [None]
